FAERS Safety Report 13882777 (Version 1)
Quarter: 2017Q3

REPORT INFORMATION
  Report Type: Report from Study
  Country: US (occurrence: US)
  Receive Date: 20170818
  Receipt Date: 20170818
  Transmission Date: 20171127
  Serious: Yes (Hospitalization)
  Sender: FDA-Public Use
  Company Number: PHEH2017US025437

PATIENT
  Age: 60 Year
  Sex: Female
  Weight: 126.53 kg

DRUGS (9)
  1. KLOR-CON [Concomitant]
     Active Substance: POTASSIUM CHLORIDE
     Indication: PULMONARY ARTERIAL HYPERTENSION
     Dosage: 32 MG, QD
     Route: 048
     Dates: start: 201301
  2. LASIX [Concomitant]
     Active Substance: FUROSEMIDE
     Indication: PULMONARY ARTERIAL HYPERTENSION
     Dosage: 1 DF, QD, 80 MG ONCE IN THE MORNING AND 40 MG ONCE IN THE EVENING
     Route: 048
     Dates: start: 201301
  3. BERAPROST SODIUM [Suspect]
     Active Substance: BERAPROST SODIUM
     Indication: PULMONARY ARTERIAL HYPERTENSION
     Dosage: 30 UG, QID
     Route: 048
     Dates: start: 20150805
  4. METOLAZONE TABLETS USP [Suspect]
     Active Substance: METOLAZONE
     Indication: PULMONARY ARTERIAL HYPERTENSION
     Dosage: 5 MG, QD
     Route: 048
     Dates: start: 20170607, end: 20170616
  5. PRILOSEC [Concomitant]
     Active Substance: OMEPRAZOLE MAGNESIUM
     Indication: GASTROOESOPHAGEAL REFLUX DISEASE
     Route: 065
     Dates: start: 20170606
  6. REVATIO [Concomitant]
     Active Substance: SILDENAFIL CITRATE
     Indication: PULMONARY ARTERIAL HYPERTENSION
     Dosage: 180 MG, QD
     Route: 048
     Dates: start: 201503
  7. TYLENOL [Concomitant]
     Active Substance: ACETAMINOPHEN
     Indication: HEADACHE
     Dosage: 650 MG, QD
     Route: 048
     Dates: start: 201303
  8. TYVASO [Suspect]
     Active Substance: TREPROSTINIL
     Indication: PULMONARY ARTERIAL HYPERTENSION
     Dosage: 54 UG, QID (9 BREATHS)
     Route: 055
     Dates: start: 20150327
  9. TRACLEER [Concomitant]
     Active Substance: BOSENTAN
     Indication: PULMONARY ARTERIAL HYPERTENSION
     Dosage: 250 MG, QD
     Route: 048
     Dates: start: 201303

REACTIONS (9)
  - Chest discomfort [Unknown]
  - Vomiting [Recovered/Resolved]
  - Fatigue [Unknown]
  - Dyspepsia [Unknown]
  - Dehydration [Recovered/Resolved]
  - Decreased appetite [Unknown]
  - Dyspnoea [Unknown]
  - Nausea [Recovered/Resolved]
  - Chest pain [Unknown]

NARRATIVE: CASE EVENT DATE: 20170607
